FAERS Safety Report 11128270 (Version 2)
Quarter: 2015Q2

REPORT INFORMATION
  Report Type: Report from Study
  Country: JP (occurrence: JP)
  Receive Date: 20150521
  Receipt Date: 20150609
  Transmission Date: 20150821
  Serious: No
  Sender: FDA-Public Use
  Company Number: JP-SA-2015SA065721

PATIENT
  Age: 75 Year
  Sex: Male
  Weight: 64.9 kg

DRUGS (15)
  1. LASIX [Concomitant]
     Active Substance: FUROSEMIDE
     Dates: end: 20130925
  2. NATRIX [Concomitant]
     Active Substance: INDAPAMIDE
     Dates: start: 20131120
  3. LIVALO [Concomitant]
     Active Substance: PITAVASTATIN CALCIUM
     Dates: end: 20131030
  4. PLAVIX [Suspect]
     Active Substance: CLOPIDOGREL BISULFATE
     Indication: ARTERIAL OCCLUSIVE DISEASE
     Route: 065
     Dates: start: 20130704, end: 20140625
  5. OFLOXIN [Concomitant]
     Dosage: OPHTHALMIC SOLUTION
     Dates: start: 20130730
  6. AZILVA [Concomitant]
     Active Substance: AZILSARTAN KAMEDOXOMIL
     Dates: start: 20131219
  7. LIVALO [Concomitant]
     Active Substance: PITAVASTATIN CALCIUM
     Dates: start: 20131031
  8. DIOVAN [Concomitant]
     Active Substance: VALSARTAN
     Dates: end: 20130717
  9. ADALAT CC [Concomitant]
     Active Substance: NIFEDIPINE
  10. TANATRIL [Concomitant]
     Active Substance: IMIDAPRIL
     Dates: start: 20130718
  11. PITOS [Concomitant]
     Dosage: OPHTHALMIC SOLUTION
     Dates: start: 20130730
  12. ACTOS [Concomitant]
     Active Substance: PIOGLITAZONE HYDROCHLORIDE
     Dates: start: 20130718
  13. ARTIST [Concomitant]
     Active Substance: CARVEDILOL
  14. TENELIA [Concomitant]
     Active Substance: CITALOPRAM HYDROBROMIDE
     Dates: start: 20130704
  15. BASEN OD [Concomitant]
     Active Substance: VOGLIBOSE

REACTIONS (2)
  - Ecchymosis [Not Recovered/Not Resolved]
  - Gastric ulcer haemorrhage [Recovered/Resolved]

NARRATIVE: CASE EVENT DATE: 20130730
